FAERS Safety Report 17807610 (Version 4)
Quarter: 2020Q2

REPORT INFORMATION
  Report Type: Spontaneous
  Country: US (occurrence: US)
  Receive Date: 20200520
  Receipt Date: 20200630
  Transmission Date: 20200714
  Serious: No
  Sender: FDA-Public Use
  Company Number: US-SA-2020SA127611

PATIENT

DRUGS (1)
  1. LANTUS SOLOSTAR [Suspect]
     Active Substance: INSULIN GLARGINE
     Indication: TYPE 2 DIABETES MELLITUS
     Dosage: 22 IU, QD (AT NIGHT)
     Route: 065

REACTIONS (5)
  - Incorrect dose administered by device [Unknown]
  - Device operational issue [Unknown]
  - Blood glucose abnormal [Unknown]
  - Injection site pain [Unknown]
  - Wrong technique in product usage process [Unknown]
